FAERS Safety Report 19103550 (Version 2)
Quarter: 2021Q3

REPORT INFORMATION
  Report Type: Other
  Country: KR (occurrence: KR)
  Receive Date: 20210407
  Receipt Date: 20210917
  Transmission Date: 20211014
  Serious: Yes (Hospitalization)
  Sender: FDA-Public Use
  Company Number: KR-ROCHE-2635295

PATIENT
  Age: 66 Year
  Sex: Male
  Weight: 77 kg

DRUGS (19)
  1. PENIRAMIN [Concomitant]
     Dates: start: 20200303, end: 20200303
  2. URSA [Concomitant]
     Active Substance: URSODIOL
     Indication: ASPARTATE AMINOTRANSFERASE INCREASED
     Dates: start: 20200121, end: 20200205
  3. URSA [Concomitant]
     Active Substance: URSODIOL
     Indication: ALANINE AMINOTRANSFERASE INCREASED
  4. PENIRAMIN [Concomitant]
     Dates: start: 20200623, end: 20200623
  5. ALDOSTEN [Concomitant]
     Indication: PRODUCTIVE COUGH
     Route: 048
     Dates: start: 20191210
  6. PENIRAMIN [Concomitant]
     Dates: start: 20200421, end: 20200421
  7. TRANSAMIN [Concomitant]
     Active Substance: TRANEXAMIC ACID
     Indication: HAEMOPTYSIS
     Route: 048
     Dates: start: 20191210
  8. CODAEWON FORTE [Concomitant]
     Indication: COUGH
     Route: 048
     Dates: start: 20181229
  9. GODEX (SOUTH KOREA) [Concomitant]
     Indication: ALANINE AMINOTRANSFERASE INCREASED
  10. ATEZOLIZUMAB. [Suspect]
     Active Substance: ATEZOLIZUMAB
     Indication: NON-SMALL CELL LUNG CANCER METASTATIC
     Dosage: ON 10/DEC/2019, 31/DEC/2019, 04/FEB/2020, 03/MAR/2020, 31/MAR/2020, 21/APR/2020, 19/MAY/2020, 23/JUN
     Route: 042
     Dates: start: 20191118
  11. PENIRAMIN [Concomitant]
     Route: 042
     Dates: start: 20191231, end: 20191231
  12. PENIRAMIN [Concomitant]
     Dates: start: 20200204, end: 20200204
  13. PENIRAMIN [Concomitant]
     Dates: start: 20200331, end: 20200331
  14. PENIRAMIN [Concomitant]
     Dates: start: 20191210, end: 20191210
  15. PENIRAMIN [Concomitant]
     Dates: start: 20200519, end: 20200519
  16. PENIRAMIN [Concomitant]
     Dates: start: 20200715, end: 20200715
  17. GODEX (SOUTH KOREA) [Concomitant]
     Indication: ASPARTATE AMINOTRANSFERASE INCREASED
     Dates: start: 20200121, end: 20200205
  18. PENIRAMIN [Concomitant]
     Indication: PROPHYLAXIS
     Dates: start: 20191118, end: 20191118
  19. SYLCON [Concomitant]
     Active Substance: CALCIUM POLYCARBOPHIL
     Indication: RECTAL CANCER
     Route: 048
     Dates: start: 20191016

REACTIONS (4)
  - Thyroiditis [Not Recovered/Not Resolved]
  - Alanine aminotransferase increased [Recovered/Resolved]
  - Aspartate aminotransferase increased [Recovered/Resolved]
  - Acute kidney injury [Recovered/Resolved]

NARRATIVE: CASE EVENT DATE: 20200109
